FAERS Safety Report 8140030-X (Version None)
Quarter: 2012Q1

REPORT INFORMATION
  Report Type: 
  Country: None (occurrence: None)
  Receive Date: 20120215
  Receipt Date: 20120206
  Transmission Date: 20120608
  Serious: Yes (Hospitalization)
  Sender: FDA-Public Use
  Company Number: US-ASTRAZENECA-2012SE07950

PATIENT
  Age: 59 Year
  Sex: Male
  Weight: 109.8 kg

DRUGS (7)
  1. ZOCOR [Concomitant]
     Indication: CEREBROVASCULAR ACCIDENT
     Route: 048
  2. SEROQUEL XR [Suspect]
     Indication: BIPOLAR DISORDER
     Route: 048
     Dates: start: 20100101
  3. LANTUS [Concomitant]
     Indication: DIABETES MELLITUS
     Dosage: 65 UNITS QD
     Route: 058
  4. LISINOPRIL [Concomitant]
     Indication: HYPERTENSION
     Route: 048
  5. PLAVIX [Concomitant]
     Indication: CEREBROVASCULAR ACCIDENT
     Route: 048
  6. HUMALOG [Concomitant]
     Indication: DIABETES MELLITUS
     Dosage: PRN
     Route: 058
  7. PROZAC [Concomitant]
     Indication: ANXIETY
     Route: 048

REACTIONS (1)
  - CEREBROVASCULAR ACCIDENT [None]
